FAERS Safety Report 10993252 (Version 1)
Quarter: 2015Q2

REPORT INFORMATION
  Report Type: Spontaneous
  Country: US (occurrence: US)
  Receive Date: 20150407
  Receipt Date: 20150407
  Transmission Date: 20150821
  Serious: Yes (Hospitalization, Other)
  Sender: FDA-Public Use
  Company Number: US-AUROBINDO-AUR-APL-2015-02903

PATIENT
  Age: 57 Year
  Sex: Female

DRUGS (3)
  1. EMTRICITABINE AND TENOFOVIR DISOPROXIL FUMARATE TABLETS 200MG/300MG [Suspect]
     Active Substance: EMTRICITABINE\TENOFOVIR DISOPROXIL FUMARATE
     Indication: ANTIRETROVIRAL THERAPY
     Dosage: UNK
     Route: 065
  2. DARUNAVIR [Suspect]
     Active Substance: DARUNAVIR
     Indication: ANTIRETROVIRAL THERAPY
     Dosage: UNK
     Route: 065
  3. RITONAVIR. [Suspect]
     Active Substance: RITONAVIR
     Indication: ANTIRETROVIRAL THERAPY
     Dosage: UNK
     Route: 065

REACTIONS (8)
  - Obstructive airways disorder [Recovered/Resolved]
  - Tachypnoea [Recovered/Resolved]
  - Respiratory failure [Recovered/Resolved]
  - Cerebrovascular accident [Unknown]
  - Respiratory distress [Recovered/Resolved]
  - Total lung capacity decreased [Recovered/Resolved]
  - Lipohypertrophy [Recovered/Resolved]
  - Chronic obstructive pulmonary disease [Recovered/Resolved]
